FAERS Safety Report 17752538 (Version 1)
Quarter: 2020Q2

REPORT INFORMATION
  Report Type: Report from Study
  Country: US (occurrence: US)
  Receive Date: 20200506
  Receipt Date: 20200506
  Transmission Date: 20200714
  Serious: Yes (Death, Other)
  Sender: FDA-Public Use
  Company Number: US-ADAMAS PHARMA, LLC-2020ADA01018

PATIENT
  Age: 69 Year
  Sex: Female

DRUGS (6)
  1. CARBIDOPA/LEVODOPA [Concomitant]
     Active Substance: CARBIDOPA\LEVODOPA
  2. GOCOVRI [Suspect]
     Active Substance: AMANTADINE
     Indication: DYSKINESIA
     Dosage: 274 MG, 1X/DAY AT BEDTIME
     Route: 048
     Dates: start: 20191029, end: 20200419
  3. NOURIANZ [Suspect]
     Active Substance: ISTRADEFYLLINE
     Dosage: 40 MG, 1X/DAY
     Dates: start: 20200319
  4. NUEDEXTA [Concomitant]
     Active Substance: DEXTROMETHORPHAN HYDROBROMIDE\QUINIDINE SULFATE
  5. ROPINIROLE. [Concomitant]
     Active Substance: ROPINIROLE
  6. MIDODRINE [Concomitant]
     Active Substance: MIDODRINE

REACTIONS (8)
  - Seizure like phenomena [Unknown]
  - Hip fracture [Unknown]
  - Product dose omission [Recovered/Resolved]
  - Hypotension [Unknown]
  - Hallucination [Unknown]
  - Death [Fatal]
  - Fall [Unknown]
  - Loss of consciousness [Not Recovered/Not Resolved]

NARRATIVE: CASE EVENT DATE: 202002
